FAERS Safety Report 20032471 (Version 1)
Quarter: 2021Q4

REPORT INFORMATION
  Report Type: Spontaneous
  Country: US (occurrence: US)
  Receive Date: 20211103
  Receipt Date: 20211103
  Transmission Date: 20220303
  Serious: No
  Sender: FDA-Public Use
  Company Number: US-ALLERGAN-2123528US

PATIENT
  Age: 22 Year
  Sex: Female
  Weight: 72.12 kg

DRUGS (20)
  1. VRAYLAR [Suspect]
     Active Substance: CARIPRAZINE
     Indication: Product used for unknown indication
     Dosage: 3 MG, QD
     Route: 048
     Dates: start: 20210316
  2. VRAYLAR [Suspect]
     Active Substance: CARIPRAZINE
     Dosage: 4.5 MG, QD
     Route: 048
     Dates: start: 20210312
  3. VRAYLAR [Suspect]
     Active Substance: CARIPRAZINE
     Dosage: 1.5 MG, QD
     Route: 048
     Dates: start: 20210227
  4. PROPRANOLOL HCL ER 60mg Cap [Concomitant]
     Indication: Tremor
     Dosage: 60 MG, QAM
     Route: 048
     Dates: start: 20210308
  5. VIENVA TM [Concomitant]
     Active Substance: ETHINYL ESTRADIOL\LEVONORGESTREL
     Indication: Contraception
     Dosage: 1 DF, QD
  6. CYANOCOBALAMIN\DEXPANTHENOL\NIACINAMIDE\PYRIDOXINE HYDROCHLORIDE\RIBOF [Concomitant]
     Active Substance: CYANOCOBALAMIN\DEXPANTHENOL\NIACINAMIDE\PYRIDOXINE HYDROCHLORIDE\RIBOFLAVIN 5^-PHOSPHATE SODIUM\THIA
     Dosage: UNK
     Dates: start: 20210202
  7. ENLYTE [Concomitant]
     Active Substance: CALCIUM ASCORBATE\CALCIUM THREONATE\COBALAMIN\COCARBOXYLASE\FERROUS GLUCONATE\FISH OIL\FLAVIN ADENIN
     Indication: Methylenetetrahydrofolate reductase deficiency
     Dosage: 1 DF, QD
     Dates: start: 20210202
  8. LITHIUM [Concomitant]
     Active Substance: LITHIUM
     Indication: Mood swings
     Dosage: 600MG IN THE MORNING AND 900MG AT NIGHT
     Dates: start: 20210108
  9. MAGNESIUM GLYCINATE [Concomitant]
     Active Substance: MAGNESIUM GLYCINATE
     Indication: Anxiety
     Dosage: 400 MG, QHS
     Dates: start: 20210316
  10. MAGNESIUM GLYCINATE [Concomitant]
     Active Substance: MAGNESIUM GLYCINATE
     Indication: Insomnia
  11. SYNAPTAGENX [Concomitant]
     Indication: Methylenetetrahydrofolate reductase deficiency
     Dosage: 2 DF, BID
     Route: 048
  12. CANNABIS SATIVA SUBSP. INDICA TOP [Concomitant]
     Active Substance: CANNABIS SATIVA SUBSP. INDICA TOP
     Dosage: ONCE OR TWICE PER MONTH (NOT GETTING A GRAM PER DAY)
     Route: 055
  13. VITAMIN E [Concomitant]
     Active Substance: .ALPHA.-TOCOPHEROL
     Indication: Prophylaxis
     Dosage: 400 IU, BID
     Route: 048
     Dates: start: 20210526
  14. MIRTAZAPINE [Concomitant]
     Active Substance: MIRTAZAPINE
     Indication: Insomnia
     Dosage: 15 MG, QHS
     Route: 048
     Dates: start: 20210412
  15. CLONIDINE [Concomitant]
     Active Substance: CLONIDINE
     Indication: Nightmare
     Dosage: 0.3 MG, QHS
     Route: 048
  16. CLONIDINE [Concomitant]
     Active Substance: CLONIDINE
     Indication: Hypotension
  17. CLONIDINE [Concomitant]
     Active Substance: CLONIDINE
     Indication: Eating disorder
  18. CLONIDINE [Concomitant]
     Active Substance: CLONIDINE
     Indication: Disturbance in attention
  19. GABAPENTIN [Concomitant]
     Active Substance: GABAPENTIN
     Indication: Anxiety
     Dosage: 300 MG, TID
     Route: 048
     Dates: start: 20210330
  20. WELLBUTRIN XL [Concomitant]
     Active Substance: BUPROPION HYDROCHLORIDE
     Indication: Depression
     Dosage: 300 MG, QAM
     Route: 048
     Dates: start: 20210318

REACTIONS (6)
  - Reduced facial expression [Not Recovered/Not Resolved]
  - Bradykinesia [Not Recovered/Not Resolved]
  - Akathisia [Not Recovered/Not Resolved]
  - Tardive dyskinesia [Not Recovered/Not Resolved]
  - Dyskinesia [Not Recovered/Not Resolved]
  - Hypokinesia [Not Recovered/Not Resolved]

NARRATIVE: CASE EVENT DATE: 20210330
